FAERS Safety Report 17284152 (Version 3)
Quarter: 2020Q2

REPORT INFORMATION
  Report Type: Report from Study
  Country: US (occurrence: US)
  Receive Date: 20200117
  Receipt Date: 20200409
  Transmission Date: 20200713
  Serious: No
  Sender: FDA-Public Use
  Company Number: NVSC2020US007658

PATIENT
  Age: 55 Year
  Sex: Female

DRUGS (1)
  1. COSENTYX [Suspect]
     Active Substance: SECUKINUMAB
     Indication: PSORIASIS
     Dosage: 300 MG
     Route: 058
     Dates: start: 20191112

REACTIONS (12)
  - Burning sensation [Unknown]
  - Viral infection [Unknown]
  - Papule [Unknown]
  - Pain in extremity [Unknown]
  - Paraesthesia [Unknown]
  - Cough [Unknown]
  - Vomiting [Unknown]
  - Rash [Unknown]
  - Blister [Recovering/Resolving]
  - Pyrexia [Unknown]
  - Sinus disorder [Unknown]
  - Skin exfoliation [Unknown]

NARRATIVE: CASE EVENT DATE: 20191221
